FAERS Safety Report 8065702-7 (Version None)
Quarter: 2011Q4

REPORT INFORMATION
  Report Type: 
  Country: None (occurrence: None)
  Receive Date: 20111221
  Receipt Date: 20111006
  Transmission Date: 20120403
  Serious: Yes (Death)
  Sender: FDA-Public Use
  Company Number: PHEH2011US06126

PATIENT
  Age: 76 Year
  Sex: Male
  Weight: 105.5 kg

DRUGS (1)
  1. EXJADE [Suspect]
     Indication: 5Q MINUS SYNDROME
     Dosage: 2050MG, DAILY, ORAL
     Route: 048
     Dates: start: 20110101

REACTIONS (2)
  - NEOPLASM MALIGNANT [None]
  - NEOPLASM PROGRESSION [None]
